FAERS Safety Report 14494019 (Version 1)
Quarter: 2018Q1

REPORT INFORMATION
  Report Type: Spontaneous
  Country: CN (occurrence: CN)
  Receive Date: 20180206
  Receipt Date: 20180206
  Transmission Date: 20180509
  Serious: Yes (Other)
  Sender: FDA-Public Use
  Company Number: CN-PFIZER INC-2018050470

PATIENT
  Age: 52 Year
  Sex: Male
  Weight: 43 kg

DRUGS (1)
  1. FLUCONAZOLE. [Suspect]
     Active Substance: FLUCONAZOLE
     Indication: PNEUMONIA FUNGAL
     Dosage: 200 MG, 1X/DAY
     Route: 041
     Dates: start: 20171204, end: 20171211

REACTIONS (5)
  - Language disorder [Unknown]
  - Altered state of consciousness [Unknown]
  - Irritability [Unknown]
  - Delirium [Unknown]
  - Epilepsy [Unknown]

NARRATIVE: CASE EVENT DATE: 20171211
